FAERS Safety Report 24573562 (Version 1)
Quarter: 2024Q4

REPORT INFORMATION
  Report Type: Other
  Country: US (occurrence: US)
  Receive Date: 20241102
  Receipt Date: 20241102
  Transmission Date: 20250114
  Serious: Yes (Hospitalization, Other)
  Sender: YOUNGTECH PHARMACEUTICALS, INC
  Company Number: US-YoungTech Pharmaceuticals, Inc.-2164253

PATIENT
  Age: 61 Year
  Sex: Female

DRUGS (1)
  1. METOPROLOL TARTRATE [Suspect]
     Active Substance: METOPROLOL TARTRATE
     Indication: Product used for unknown indication

REACTIONS (1)
  - BRASH syndrome [Recovering/Resolving]
